FAERS Safety Report 8532276-3 (Version None)
Quarter: 2012Q3

REPORT INFORMATION
  Report Type: 
  Country: None (occurrence: None)
  Receive Date: 20120724
  Receipt Date: 20120718
  Transmission Date: 20120928
  Serious: Yes (Other)
  Sender: FDA-Public Use
  Company Number: PHHY2012TW062066

PATIENT
  Age: 60 Year
  Sex: Female

DRUGS (4)
  1. LITHIUM CARBONATE [Concomitant]
     Dosage: 300 MG, DAILY
  2. QUETIAPINE [Interacting]
     Indication: PSYCHOTIC DISORDER
     Dosage: 400 MG PER DAY
  3. QUETIAPINE [Interacting]
     Indication: MANIA
     Dosage: 200 MG, DAILY
  4. VALPROIC ACID [Suspect]
     Dosage: 500 MG PER DAY

REACTIONS (2)
  - NEUTROPENIA [None]
  - DRUG INTERACTION [None]
